FAERS Safety Report 5988229-2 (Version None)
Quarter: 2008Q4

REPORT INFORMATION
  Report Type: 
  Country: None (occurrence: None)
  Receive Date: 20081204
  Receipt Date: 20081120
  Transmission Date: 20090506
  Serious: Yes (Hospitalization)
  Sender: FDA-Public Use
  Company Number: KV200800425

PATIENT
  Age: 66 Year
  Sex: Female
  Weight: 111.1 kg

DRUGS (5)
  1. ISOSORBIDE MONONITRATE [Suspect]
     Indication: DRUG USE FOR UNKNOWN INDICATION
     Dosage: 30 MG, QD, ORAL
     Route: 048
     Dates: start: 20030101, end: 20081021
  2. LOVASTATIN [Concomitant]
  3. VERAPAMIL [Concomitant]
  4. AMLODIPINE BESYLATE [Concomitant]
  5. ASPIRIN [Concomitant]

REACTIONS (8)
  - BLOOD PRESSURE INCREASED [None]
  - FOOT FRACTURE [None]
  - HEART RATE INCREASED [None]
  - PAIN IN EXTREMITY [None]
  - PRODUCT QUALITY ISSUE [None]
  - RESPIRATORY RATE INCREASED [None]
  - STRESS [None]
  - WHEELCHAIR USER [None]
